FAERS Safety Report 25491555 (Version 1)
Quarter: 2025Q2

REPORT INFORMATION
  Report Type: Spontaneous
  Country: CN (occurrence: CN)
  Receive Date: 20250629
  Receipt Date: 20250629
  Transmission Date: 20250716
  Serious: Yes (Hospitalization, Other)
  Sender: B. BRAUN MEDICAL INC.
  Company Number: CN-B. Braun Medical Inc.-CN-BBM-202502470

PATIENT
  Age: 80 Year
  Sex: Male

DRUGS (6)
  1. MEROPENEM [Suspect]
     Active Substance: MEROPENEM
     Indication: Pneumonia
  2. PIPERACILLIN\SULBACTAM [Suspect]
     Active Substance: PIPERACILLIN\SULBACTAM
  3. OSELTAMIVIR [Concomitant]
     Active Substance: OSELTAMIVIR
  4. LINEZOLID [Concomitant]
     Active Substance: LINEZOLID
  5. METHYLPREDNISOLONE [Concomitant]
     Active Substance: METHYLPREDNISOLONE
  6. NOREPINEPHRINE [Concomitant]
     Active Substance: NOREPINEPHRINE

REACTIONS (1)
  - Jarisch-Herxheimer reaction [Recovered/Resolved]
